FAERS Safety Report 9901684 (Version 1)
Quarter: 2014Q1

REPORT INFORMATION
  Report Type: Spontaneous
  Country: US (occurrence: US)
  Receive Date: 20140217
  Receipt Date: 20140217
  Transmission Date: 20141002
  Serious: Yes (Death, Hospitalization)
  Sender: FDA-Public Use
  Company Number: PHHY2014US015359

PATIENT
  Age: 53 Year
  Sex: Female

DRUGS (8)
  1. FUROSEMIDE [Suspect]
     Indication: OLIGURIA
  2. FLUOROURACIL [Concomitant]
     Indication: BREAST CANCER METASTATIC
  3. DOXORUBICIN [Concomitant]
     Indication: BREAST CANCER METASTATIC
  4. CYCLOPHOSPHAMIDE [Concomitant]
     Indication: BREAST CANCER METASTATIC
  5. ALLOPURINOL [Concomitant]
  6. INSULIN [Concomitant]
  7. GLUCOSE [Concomitant]
     Route: 042
  8. ELECTROLYTE SOLUTIONS [Concomitant]
     Route: 042

REACTIONS (3)
  - Tumour lysis syndrome [Fatal]
  - Cardiac arrest [Fatal]
  - Oliguria [Unknown]
